FAERS Safety Report 8618467-1 (Version None)
Quarter: 2012Q3

REPORT INFORMATION
  Report Type: 
  Country: None (occurrence: None)
  Receive Date: 20120824
  Receipt Date: 20120810
  Transmission Date: 20120928
  Serious: No
  Sender: FDA-Public Use
  Company Number: US-009507513-1208USA005734

PATIENT

DRUGS (1)
  1. SAPHRIS [Suspect]
     Indication: BIPOLAR DISORDER
     Dosage: 5 MG, QD, ONCE DAILY,BLACK CHERRY FLAVOUR
     Route: 060
     Dates: start: 20120801

REACTIONS (3)
  - HEADACHE [None]
  - RASH [None]
  - WEIGHT INCREASED [None]
